FAERS Safety Report 8407979-1 (Version None)
Quarter: 2012Q2

REPORT INFORMATION
  Report Type: 
  Country: None (occurrence: None)
  Receive Date: 20120604
  Receipt Date: 20120531
  Transmission Date: 20120825
  Serious: No
  Sender: FDA-Public Use
  Company Number: US-JNJFOC-20120600853

PATIENT
  Sex: Female
  Weight: 49.9 kg

DRUGS (2)
  1. DURAGESIC-100 [Suspect]
     Route: 062
     Dates: start: 20080101
  2. DURAGESIC-100 [Suspect]
     Indication: FIBROMYALGIA
     Route: 062
     Dates: start: 20050101, end: 20080101

REACTIONS (3)
  - POOR QUALITY DRUG ADMINISTERED [None]
  - BREAKTHROUGH PAIN [None]
  - HYPOKINESIA [None]
